FAERS Safety Report 6902988-3 (Version None)
Quarter: 2010Q3

REPORT INFORMATION
  Report Type: 
  Country: None (occurrence: None)
  Receive Date: 20100803
  Receipt Date: 20080708
  Transmission Date: 20110219
  Serious: Yes (Other)
  Sender: FDA-Public Use
  Company Number: US-PFIZER INC-2008044423

PATIENT
  Sex: Female
  Weight: 122.9 kg

DRUGS (10)
  1. LYRICA [Suspect]
     Indication: PAIN
     Dates: start: 20080401
  2. LYRICA [Suspect]
     Indication: FIBROMYALGIA
  3. KETAMINE HCL [Suspect]
     Dates: start: 20080505
  4. ANECTINE [Suspect]
  5. DESFLURANE [Suspect]
     Dates: start: 20080505
  6. LOPRESSOR [Concomitant]
  7. ZOLOFT [Concomitant]
  8. ATROVENT [Concomitant]
  9. PROAIR HFA [Concomitant]
  10. BENICAR HCT [Concomitant]

REACTIONS (3)
  - HYPOTENSION [None]
  - HYPOTHYROIDISM [None]
  - URINARY TRACT INFECTION [None]
